FAERS Safety Report 11108300 (Version 2)
Quarter: 2015Q2

REPORT INFORMATION
  Report Type: Spontaneous
  Country: PT (occurrence: PT)
  Receive Date: 20150512
  Receipt Date: 20150624
  Transmission Date: 20150821
  Serious: Yes (Disabling)
  Sender: FDA-Public Use
  Company Number: PT-ALLERGAN-1502270US

PATIENT
  Age: 68 Year
  Sex: Male

DRUGS (7)
  1. ACLIDINIUM BROMIDE [Concomitant]
     Active Substance: ACLIDINIUM BROMIDE
     Indication: CHRONIC OBSTRUCTIVE PULMONARY DISEASE
     Dosage: 322 MCG, BID
     Dates: start: 2014
  2. SALBUTAMOL SULFATE [Concomitant]
     Active Substance: ALBUTEROL SULFATE
     Indication: CHRONIC OBSTRUCTIVE PULMONARY DISEASE
     Dosage: 5 MG / 1 ML, 1 X DAY
     Dates: start: 2013
  3. IPRATROPIUM BROMIDE. [Concomitant]
     Active Substance: IPRATROPIUM BROMIDE
     Indication: CHRONIC OBSTRUCTIVE PULMONARY DISEASE
     Dosage: 0.25 MG / 2 ML, 1 X DAY
     Dates: start: 2013
  4. LUMIGAN [Suspect]
     Active Substance: BIMATOPROST
     Indication: GLAUCOMA
     Dosage: ONE DROP IN EACH EYE, 1X DAY
     Route: 047
     Dates: start: 20141215, end: 20150113
  5. INDACATEROL MALEATE [Concomitant]
     Active Substance: INDACATEROL MALEATE
     Indication: CHRONIC OBSTRUCTIVE PULMONARY DISEASE
     Dosage: 150 MCG, QD
     Dates: start: 2007
  6. AMINOPHYLLINE [Concomitant]
     Active Substance: AMINOPHYLLINE
     Indication: CHRONIC OBSTRUCTIVE PULMONARY DISEASE
     Dosage: 2 X 225 MG/ DAY
     Route: 048
     Dates: start: 2000
  7. BUDESONIDE. [Concomitant]
     Active Substance: BUDESONIDE
     Indication: CHRONIC OBSTRUCTIVE PULMONARY DISEASE
     Dosage: 400 MCG, BID
     Route: 055
     Dates: start: 2000

REACTIONS (5)
  - Growth of eyelashes [Recovering/Resolving]
  - Skin discolouration [Recovering/Resolving]
  - Eyelash hyperpigmentation [Recovering/Resolving]
  - Fatigue [Recovering/Resolving]
  - Dyspnoea [Recovering/Resolving]

NARRATIVE: CASE EVENT DATE: 20141215
